FAERS Safety Report 24432022 (Version 1)
Quarter: 2024Q4

REPORT INFORMATION
  Report Type: Spontaneous
  Country: GB (occurrence: GB)
  Receive Date: 20241014
  Receipt Date: 20241014
  Transmission Date: 20250114
  Serious: Yes (Death, Other)
  Sender: ABBVIE
  Company Number: None

PATIENT
  Age: 51 Year
  Sex: Male

DRUGS (3)
  1. RITONAVIR [Suspect]
     Active Substance: RITONAVIR
     Indication: Adverse drug reaction
     Dosage: 100MG ONCE A DAY
     Route: 048
  2. EMTRICITABINE\TENOFOVIR DISOPROXIL [Suspect]
     Active Substance: EMTRICITABINE\TENOFOVIR DISOPROXIL
     Indication: Adverse drug reaction
     Dosage: 200/245MG ONCE A DAY
     Route: 065
  3. DARUNAVIR [Suspect]
     Active Substance: DARUNAVIR
     Indication: Adverse drug reaction
     Dosage: 800MG ONCE A DAY
     Route: 065

REACTIONS (2)
  - Status epilepticus [Fatal]
  - Epilepsy [Unknown]
